FAERS Safety Report 4549510-7 (Version None)
Quarter: 2005Q1

REPORT INFORMATION
  Report Type: 
  Country: None (occurrence: None)
  Receive Date: 20050106
  Receipt Date: 20041221
  Transmission Date: 20050727
  Serious: No
  Sender: FDA-Public Use
  Company Number: DSA_255232004

PATIENT
  Age: 72 Year
  Sex: Male

DRUGS (4)
  1. TEVETEN [Suspect]
     Dosage: 400 MG Q DAY PO
     Route: 048
     Dates: start: 20040213
  2. BEZALIP [Concomitant]
  3. CRESTOR [Concomitant]
  4. TYLENOL [Concomitant]

REACTIONS (1)
  - INGUINAL HERNIA [None]
